FAERS Safety Report 7016315-7 (Version None)
Quarter: 2010Q3

REPORT INFORMATION
  Report Type: 
  Country: None (occurrence: None)
  Receive Date: 20100927
  Receipt Date: 20100915
  Transmission Date: 20110219
  Serious: Yes (Hospitalization, Other)
  Sender: FDA-Public Use
  Company Number: JP-PFIZER INC-2006127960

PATIENT
  Age: 74 Year
  Sex: Male
  Weight: 51.9 kg

DRUGS (16)
  1. VFEND [Suspect]
     Indication: SYSTEMIC MYCOSIS
     Dosage: 200 MG, 2X/DAY
     Route: 048
     Dates: start: 20060913, end: 20060926
  2. ALDACTONE [Concomitant]
     Dosage: UNK
     Route: 048
     Dates: start: 20060911, end: 20060927
  3. MICARDIS [Concomitant]
     Dosage: UNK
     Route: 048
     Dates: start: 20060911, end: 20060929
  4. ALTAT [Concomitant]
     Route: 048
     Dates: start: 20060720
  5. PREDONINE [Concomitant]
     Route: 048
     Dates: start: 20060720
  6. BIO THREE [Concomitant]
     Dosage: UNK
     Route: 048
     Dates: start: 20060715, end: 20060929
  7. FUNGIZONE [Concomitant]
     Dosage: UNK
     Route: 048
     Dates: start: 20060720, end: 20060927
  8. POVIDONE IODINE [Concomitant]
     Route: 048
  9. ACTONEL [Concomitant]
     Dosage: UNK
     Route: 048
     Dates: start: 20060824, end: 20060930
  10. DEXTROSE [Concomitant]
     Route: 042
     Dates: start: 20060918
  11. HUMALOG [Concomitant]
     Route: 042
     Dates: start: 20060815
  12. HUMACART-N [Concomitant]
     Route: 058
     Dates: start: 20060825
  13. PRODIF [Concomitant]
     Dosage: UNK
     Route: 042
     Dates: start: 20060905, end: 20060912
  14. TELMISARTAN [Concomitant]
     Dosage: 20 MG, 1X/DAY
  15. PREDNISOLONE [Concomitant]
     Dosage: 20 MG, 1X/DAY
  16. ROXATIDINE [Concomitant]
     Dosage: 75 MG, 1X/DAY

REACTIONS (3)
  - ALTERED STATE OF CONSCIOUSNESS [None]
  - HEPATIC FUNCTION ABNORMAL [None]
  - RENAL SALT-WASTING SYNDROME [None]
